FAERS Safety Report 5192662-9 (Version None)
Quarter: 2006Q4

REPORT INFORMATION
  Report Type: 
  Country: None (occurrence: None)
  Receive Date: 20061228
  Receipt Date: 20061220
  Transmission Date: 20070319
  Serious: Yes (Other)
  Sender: FDA-Public Use
  Company Number: US-BAYER-200616966BWH

PATIENT
  Age: 47 Year
  Sex: Male

DRUGS (6)
  1. LEVITRA [Suspect]
     Indication: DRUG USE FOR UNKNOWN INDICATION
     Dosage: TOTAL DAILY DOSE: 20 MG  UNIT DOSE: 20 MG
     Route: 048
     Dates: start: 20061219
  2. AGENERASE [Concomitant]
  3. NORVIR [Concomitant]
  4. ACYCLOVIR [Concomitant]
  5. ZIAGEN [Concomitant]
  6. VIAGRA [Concomitant]

REACTIONS (5)
  - CHILLS [None]
  - FLUSHING [None]
  - HEADACHE [None]
  - PYREXIA [None]
  - VISUAL DISTURBANCE [None]
